FAERS Safety Report 9244397 (Version 1)
Quarter: 2013Q2

REPORT INFORMATION
  Report Type: Spontaneous
  Country: US (occurrence: US)
  Receive Date: 20130422
  Receipt Date: 20130422
  Transmission Date: 20140414
  Serious: Yes (Hospitalization)
  Sender: FDA-Public Use
  Company Number: US-BAYER-2013-050147

PATIENT
  Age: 20 Year
  Sex: Female
  Weight: 56.69 kg

DRUGS (3)
  1. YASMIN [Suspect]
  2. AVELOX [Concomitant]
     Dosage: 400 MG, DAILY FOR 10 DAYS
     Route: 048
     Dates: start: 20040219
  3. DICLOFENAC POTASSIUM [Concomitant]
     Dosage: 50 MG, TID
     Route: 048
     Dates: start: 20040219

REACTIONS (1)
  - Pulmonary embolism [None]
